FAERS Safety Report 7701295-9 (Version None)
Quarter: 2011Q3

REPORT INFORMATION
  Report Type: 
  Country: None (occurrence: None)
  Receive Date: 20110817
  Receipt Date: 20110811
  Transmission Date: 20111222
  Serious: Yes (Other)
  Sender: FDA-Public Use
  Company Number: TRP_07888_2011

PATIENT
  Age: 69 Year
  Sex: Female

DRUGS (1)
  1. ANASTROZOLE [Suspect]
     Indication: ADJUVANT THERAPY
     Dosage: (DF), (DF)

REACTIONS (4)
  - LEUKOCYTOCLASTIC VASCULITIS [None]
  - ARTHRALGIA [None]
  - HYPERHIDROSIS [None]
  - HEADACHE [None]
